FAERS Safety Report 16066680 (Version 1)
Quarter: 2019Q1

REPORT INFORMATION
  Report Type: Spontaneous
  Country: AT (occurrence: AT)
  Receive Date: 20190313
  Receipt Date: 20190313
  Transmission Date: 20190418
  Serious: Yes (Hospitalization)
  Sender: FDA-Public Use
  Company Number: AT-ELI_LILLY_AND_COMPANY-AT201903000300

PATIENT
  Age: 16 Year
  Sex: Male
  Weight: 90 kg

DRUGS (1)
  1. ZYPREXA [Suspect]
     Active Substance: OLANZAPINE
     Indication: PRODUCT USED FOR UNKNOWN INDICATION
     Dosage: 21DF, UNKNOWN
     Route: 048
     Dates: start: 20170105, end: 20170105

REACTIONS (8)
  - Electrocardiogram QT prolonged [Unknown]
  - Agitation [Unknown]
  - Muscle spasms [Unknown]
  - Transaminases increased [Unknown]
  - Hypertension [Unknown]
  - Nausea [Unknown]
  - Confusional state [Unknown]
  - Intentional overdose [Recovered/Resolved]

NARRATIVE: CASE EVENT DATE: 20170105
